FAERS Safety Report 9924944 (Version 1)
Quarter: 2014Q1

REPORT INFORMATION
  Report Type: Spontaneous
  Country: IT (occurrence: None)
  Receive Date: 20140221
  Receipt Date: 20140221
  Transmission Date: 20141002
  Serious: No
  Sender: FDA-Public Use
  Company Number: IT-014760

PATIENT
  Age: 77 Year
  Sex: Male

DRUGS (1)
  1. FIRMAGON (FIRMAGON) [Suspect]
     Indication: PROSTATE CANCER
     Dates: start: 20140107, end: 20140107

REACTIONS (1)
  - Infusion site granuloma [None]
